FAERS Safety Report 17011662 (Version 8)
Quarter: 2023Q1

REPORT INFORMATION
  Report Type: Report from Study
  Country: DE (occurrence: DE)
  Receive Date: 20191108
  Receipt Date: 20230222
  Transmission Date: 20230417
  Serious: Yes (Hospitalization)
  Sender: FDA-Public Use
  Company Number: NVSC2019DE019695

PATIENT
  Age: 53 Year
  Sex: Male
  Weight: 135.6 kg

DRUGS (16)
  1. SECUKINUMAB [Suspect]
     Active Substance: SECUKINUMAB
     Indication: Ankylosing spondylitis
     Dosage: UNK
     Route: 058
     Dates: start: 20180516, end: 20180809
  2. QUETIAPINE [Concomitant]
     Active Substance: QUETIAPINE
     Indication: Depression
     Dosage: UNK
     Route: 065
     Dates: start: 20190325
  3. CANDESARTAN CILEXETIL\HYDROCHLOROTHIAZIDE [Concomitant]
     Active Substance: CANDESARTAN CILEXETIL\HYDROCHLOROTHIAZIDE
     Indication: Hypertension
     Dosage: UNK
     Route: 065
     Dates: start: 19930101
  4. HUMIRA [Concomitant]
     Active Substance: ADALIMUMAB
     Indication: Ankylosing spondylitis
     Dosage: UNK
     Route: 065
     Dates: start: 20190807, end: 20200219
  5. VOLTAREN [Concomitant]
     Active Substance: DICLOFENAC SODIUM
     Indication: Osteoarthritis
     Dosage: UNK
     Route: 065
     Dates: start: 20191028, end: 20191031
  6. VOLTAREN [Concomitant]
     Active Substance: DICLOFENAC SODIUM
     Indication: Ankylosing spondylitis
     Dosage: UNK
     Route: 065
     Dates: start: 20200201
  7. PREGABALIN [Concomitant]
     Active Substance: PREGABALIN
     Indication: Polyneuropathy
     Dosage: UNK
     Route: 065
     Dates: start: 20180301, end: 20200514
  8. PREGABALIN [Concomitant]
     Active Substance: PREGABALIN
     Dosage: UNK
     Route: 065
     Dates: start: 20200514
  9. METOPROLOL [Concomitant]
     Active Substance: METOPROLOL
     Indication: Hypertension
     Dosage: UNK
     Route: 065
     Dates: start: 20120101
  10. PANTOPRAZOLE [Concomitant]
     Active Substance: PANTOPRAZOLE
     Indication: General physical condition
     Dosage: UNK
     Route: 065
     Dates: start: 20080101
  11. ALFUZOSIN [Concomitant]
     Active Substance: ALFUZOSIN
     Indication: Benign prostatic hyperplasia
     Dosage: UNK
     Route: 065
     Dates: start: 20170901
  12. ENBREL [Concomitant]
     Active Substance: ETANERCEPT
     Indication: Ankylosing spondylitis
     Dosage: UNK
     Route: 065
     Dates: start: 20200325
  13. DULOXETINE [Concomitant]
     Active Substance: DULOXETINE
     Indication: Depression
     Dosage: UNK
     Route: 065
     Dates: start: 20190103, end: 20200514
  14. DULOXETINE [Concomitant]
     Active Substance: DULOXETINE
     Dosage: UNK
     Route: 065
     Dates: start: 20190422
  15. TRAMADOL [Concomitant]
     Active Substance: TRAMADOL
     Indication: Ankylosing spondylitis
     Dosage: UNK
     Route: 065
     Dates: start: 20190110, end: 20191101
  16. MAPROTILINE [Concomitant]
     Active Substance: MAPROTILINE
     Indication: Depression
     Dosage: UNK
     Route: 065
     Dates: start: 20200514

REACTIONS (4)
  - Lymphadenitis [Recovered/Resolved]
  - Myeloproliferative neoplasm [Recovered/Resolved]
  - Prostate cancer [Recovered/Resolved]
  - Papillary cystadenoma lymphomatosum [Recovered/Resolved]

NARRATIVE: CASE EVENT DATE: 20191028
